FAERS Safety Report 18099901 (Version 6)
Quarter: 2021Q4

REPORT INFORMATION
  Report Type: Spontaneous
  Country: US (occurrence: US)
  Receive Date: 20200731
  Receipt Date: 20211203
  Transmission Date: 20220303
  Serious: Yes (Hospitalization, Other)
  Sender: FDA-Public Use
  Company Number: US-PFIZER INC-2016568620

PATIENT
  Age: 72 Year
  Sex: Female
  Weight: 77 kg

DRUGS (26)
  1. LYRICA [Suspect]
     Active Substance: PREGABALIN
     Indication: Fibromyalgia
     Dosage: 300 MG, 2X/DAY
     Route: 048
  2. LYRICA [Suspect]
     Active Substance: PREGABALIN
     Indication: Diabetic neuropathy
     Dosage: 2 DF, DAILY (2 CAPSULES A DAY; THINKS IT WAS 100MG BUT ISN^T SURE)
  3. LYRICA [Suspect]
     Active Substance: PREGABALIN
     Indication: Arthralgia
  4. LYRICA [Suspect]
     Active Substance: PREGABALIN
     Indication: Pain in extremity
  5. LYRICA [Suspect]
     Active Substance: PREGABALIN
     Indication: Arthritis
  6. LYRICA [Suspect]
     Active Substance: PREGABALIN
     Indication: Neuropathy peripheral
  7. FLOVENT HFA [Concomitant]
     Active Substance: FLUTICASONE PROPIONATE
     Indication: Bronchitis
     Dosage: 1 PUFF, 2X/DAY
     Dates: start: 20160106
  8. ALPRAZOLAM [Concomitant]
     Active Substance: ALPRAZOLAM
     Indication: Anxiety
     Dosage: 0.5 MG, DAILY (AS DIRECTED)
     Route: 048
     Dates: start: 20140416
  9. PAROXETINE HYDROCHLORIDE [Concomitant]
     Active Substance: PAROXETINE HYDROCHLORIDE
     Indication: Anxiety
     Dosage: 40 MG, DAILY
     Route: 048
     Dates: start: 20150529
  10. PAROXETINE HYDROCHLORIDE [Concomitant]
     Active Substance: PAROXETINE HYDROCHLORIDE
     Indication: Depression
  11. VOLTAREN [Concomitant]
     Active Substance: DICLOFENAC SODIUM
     Indication: Costochondritis
     Dosage: 4 G, 4X/DAY (APPLY TO LOWER AFFECTED EXTREMITIES; DO NOT APPLY MORE THAN 16 GRAMS)
     Route: 062
     Dates: start: 20160106
  12. NYSTATIN [Concomitant]
     Active Substance: NYSTATIN
     Indication: Candida infection
     Dosage: APPLY TO AFFECTED SKIN 2-3 TIMES DAILY AS NEEDED
     Route: 061
     Dates: start: 20160106
  13. JANUVIA [Concomitant]
     Active Substance: SITAGLIPTIN PHOSPHATE
     Indication: Diabetes mellitus
     Dosage: 100 MG, DAILY
     Route: 048
     Dates: start: 20160513
  14. METFORMIN HYDROCHLORIDE [Concomitant]
     Active Substance: METFORMIN HYDROCHLORIDE
     Indication: Diabetes mellitus
     Dosage: 1000 MG, 2X/DAY
     Route: 048
     Dates: start: 20150420
  15. ATORVASTATIN CALCIUM [Concomitant]
     Active Substance: ATORVASTATIN CALCIUM
     Indication: Hyperlipidaemia
     Dosage: 40 MG, 1X/DAY (AT BEDTIME)
     Route: 048
     Dates: start: 20140416
  16. NADOLOL [Concomitant]
     Active Substance: NADOLOL
     Indication: Hypertension
     Dosage: 20 MG, DAILY
     Route: 048
     Dates: start: 20140416
  17. TRIAMTERENE AND HYDROCHLOROTHIAZIDE [Concomitant]
     Active Substance: HYDROCHLOROTHIAZIDE\TRIAMTERENE
     Indication: Hypertension
     Dosage: 1 DF, DAILY (75-50 MG ORAL TABLET)
     Route: 048
     Dates: start: 20141028
  18. LEVOTHYROXINE SODIUM [Concomitant]
     Active Substance: LEVOTHYROXINE SODIUM
     Indication: Hypothyroidism
     Dosage: 200 UG, DAILY
     Route: 048
     Dates: start: 20140416
  19. ACETAMINOPHEN\HYDROCODONE [Concomitant]
     Active Substance: ACETAMINOPHEN\HYDROCODONE
     Indication: Back pain
     Dosage: 1 DF, AS NEEDED 10-325 MG (EVERY 6 HOURS/FOUR A DAY)
     Route: 048
  20. ACETAMINOPHEN\HYDROCODONE [Concomitant]
     Active Substance: ACETAMINOPHEN\HYDROCODONE
     Indication: Pain
  21. PROAIR HFA [Concomitant]
     Active Substance: ALBUTEROL SULFATE
     Indication: Dyspnoea
     Dosage: INHALE 1 TO 2 PUFFS EVERY 4 TO 6 HOURS AS NEEDED
  22. SULFAMETHOXAZOLE AND TRIMETHOPRIM [Concomitant]
     Active Substance: SULFAMETHOXAZOLE\TRIMETHOPRIM
     Indication: Skin infection
     Dosage: 1 DF, 2X/DAY (800-160 MG ORAL TABLET)
     Route: 048
     Dates: start: 20160511
  23. VITAMIN D NOS [Concomitant]
     Active Substance: VITAMIN D NOS
     Indication: Vitamin D deficiency
     Dosage: 50000 IU, WEEKLY
     Route: 048
     Dates: start: 20151211
  24. VITAMIN D NOS [Concomitant]
     Active Substance: VITAMIN D NOS
     Indication: Vitamin D deficiency
     Dosage: 2000 IU, 1X/DAY
     Route: 048
     Dates: start: 20151211
  25. HYDROCODONE [Concomitant]
     Active Substance: HYDROCODONE
     Indication: Gait disturbance
     Dosage: UNK
  26. HYDROCODONE [Concomitant]
     Active Substance: HYDROCODONE
     Indication: Pain

REACTIONS (3)
  - Cataract [Unknown]
  - Pneumonia [Unknown]
  - Weight decreased [Unknown]
